FAERS Safety Report 16622689 (Version 2)
Quarter: 2019Q3

REPORT INFORMATION
  Report Type: Spontaneous
  Country: US (occurrence: US)
  Receive Date: 20190723
  Receipt Date: 20190821
  Transmission Date: 20191004
  Serious: Yes (Other)
  Sender: FDA-Public Use
  Company Number: US-FARMAPROD-201906-0875

PATIENT
  Sex: Male

DRUGS (3)
  1. OXERVATE [Suspect]
     Active Substance: CENEGERMIN-BKBJ
     Indication: NEUROTROPHIC KERATOPATHY
     Route: 047
  2. MOXIFLOXACIN. [Concomitant]
     Active Substance: MOXIFLOXACIN
     Route: 047
  3. LOTEMAX [Concomitant]
     Active Substance: LOTEPREDNOL ETABONATE
     Route: 047

REACTIONS (4)
  - Ulcerative keratitis [Unknown]
  - Intentional underdose [Unknown]
  - Eye swelling [Unknown]
  - Eye pain [Unknown]
